APPROVED DRUG PRODUCT: CARBAMAZEPINE
Active Ingredient: CARBAMAZEPINE
Strength: 100MG/5ML
Dosage Form/Route: SUSPENSION;ORAL
Application: A214277 | Product #001 | TE Code: AB
Applicant: NOVITIUM PHARMA LLC
Approved: Oct 6, 2022 | RLD: No | RS: No | Type: RX